FAERS Safety Report 9694992 (Version 2)
Quarter: 2013Q4

REPORT INFORMATION
  Report Type: Spontaneous
  Country: US (occurrence: US)
  Receive Date: 20131119
  Receipt Date: 20131119
  Transmission Date: 20140711
  Serious: Yes (Disabling)
  Sender: FDA-Public Use
  Company Number: US-ROCHE-920201065001

PATIENT
  Age: 33 Year
  Sex: Female

DRUGS (5)
  1. INTERFERON ALFA-2A [Suspect]
     Indication: METASTATIC RENAL CELL CARCINOMA
     Route: 058
  2. INTERFERON ALFA-2A [Suspect]
     Route: 058
  3. INTERFERON ALFA-2A [Suspect]
     Route: 058
  4. INTERFERON ALFA-2A [Suspect]
     Route: 058
  5. FLUOROURACIL [Concomitant]
     Indication: METASTATIC RENAL CELL CARCINOMA
     Route: 065

REACTIONS (1)
  - Retinopathy [Recovering/Resolving]
